FAERS Safety Report 8298406-6 (Version None)
Quarter: 2012Q2

REPORT INFORMATION
  Report Type: 
  Country: None (occurrence: None)
  Receive Date: 20120419
  Receipt Date: 20120416
  Transmission Date: 20120825
  Serious: Yes (Hospitalization)
  Sender: FDA-Public Use
  Company Number: IT-PFIZER INC-2012028482

PATIENT
  Age: 33 Year
  Sex: Male

DRUGS (1)
  1. SULFASALAZINE [Suspect]
     Indication: COLITIS ULCERATIVE
     Dosage: 3 UNITS DOSE DAILY
     Route: 048
     Dates: start: 20111201, end: 20120115

REACTIONS (2)
  - BONE MARROW FAILURE [None]
  - HAEMOLYTIC ANAEMIA [None]
